FAERS Safety Report 17740717 (Version 1)
Quarter: 2020Q2

REPORT INFORMATION
  Report Type: Spontaneous
  Country: GB (occurrence: GB)
  Receive Date: 20200504
  Receipt Date: 20200504
  Transmission Date: 20200714
  Serious: Yes (Death, Other)
  Sender: FDA-Public Use
  Company Number: GB-GLAXOSMITHKLINE-GB2020067469

PATIENT
  Sex: Female

DRUGS (2)
  1. PIRINASE HAYFEVER RELIEF NASAL SPRAY [Suspect]
     Active Substance: FLUTICASONE PROPIONATE
     Indication: PRODUCT USED FOR UNKNOWN INDICATION
     Dosage: MATERNAL 1 SPRAY IN EACH NOSTRIL BEFORE BED
     Route: 064
     Dates: start: 20190821, end: 20190910
  2. FLIXOTIDE [Concomitant]
     Active Substance: FLUTICASONE PROPIONATE
     Indication: PRODUCT USED FOR UNKNOWN INDICATION
     Dosage: UNK
     Route: 064

REACTIONS (4)
  - Cerebral ventricle dilatation [Not Recovered/Not Resolved]
  - Foetal growth restriction [Fatal]
  - Foetal exposure during pregnancy [Unknown]
  - Congenital central nervous system anomaly [Not Recovered/Not Resolved]
